FAERS Safety Report 10484807 (Version 2)
Quarter: 2014Q4

REPORT INFORMATION
  Report Type: Spontaneous
  Country: US (occurrence: US)
  Receive Date: 20140930
  Receipt Date: 20141106
  Transmission Date: 20150528
  Serious: Yes (Other)
  Sender: FDA-Public Use
  Company Number: PHEH2014US018953

PATIENT
  Age: 49 Year
  Sex: Male

DRUGS (3)
  1. CELEBREX [Suspect]
     Active Substance: CELECOXIB
     Dosage: UNK UKN, UNK
     Route: 065
     Dates: start: 20100501
  2. DIOVAN [Suspect]
     Active Substance: VALSARTAN
     Indication: HYPERTENSION
     Dosage: UNK
     Route: 065
  3. DIOVAN [Suspect]
     Active Substance: VALSARTAN
     Dosage: 0.5 DF (320 MG), UNK
     Route: 065
     Dates: start: 201001

REACTIONS (9)
  - Cerebrovascular accident [Unknown]
  - Wrong technique in drug usage process [Unknown]
  - Urinary incontinence [Unknown]
  - Aphasia [Unknown]
  - Balance disorder [Not Recovered/Not Resolved]
  - Weight decreased [Unknown]
  - Dizziness [Unknown]
  - Vomiting [Unknown]
  - Vision blurred [Unknown]

NARRATIVE: CASE EVENT DATE: 201001
